FAERS Safety Report 21525392 (Version 2)
Quarter: 2022Q4

REPORT INFORMATION
  Report Type: Spontaneous
  Country: US (occurrence: US)
  Receive Date: 20221030
  Receipt Date: 20221101
  Transmission Date: 20230112
  Serious: No
  Sender: FDA-Public Use
  Company Number: US-ABBVIE-4172017

PATIENT
  Sex: Female

DRUGS (1)
  1. DEPAKOTE [Suspect]
     Active Substance: DIVALPROEX SODIUM
     Indication: Bipolar disorder
     Dosage: 250 MG IN MORNING AND EVENING
     Route: 048

REACTIONS (4)
  - Adverse drug reaction [Unknown]
  - Mania [Unknown]
  - Nervousness [Unknown]
  - Formication [Unknown]
